FAERS Safety Report 6062943-5 (Version None)
Quarter: 2009Q1

REPORT INFORMATION
  Report Type: 
  Country: None (occurrence: None)
  Receive Date: 20090203
  Receipt Date: 20090129
  Transmission Date: 20090719
  Serious: Yes (Hospitalization)
  Sender: FDA-Public Use
  Company Number: A0745307A

PATIENT
  Sex: Male
  Weight: 117.3 kg

DRUGS (1)
  1. AVANDIA [Suspect]

REACTIONS (4)
  - CARDIAC DISORDER [None]
  - DYSPNOEA [None]
  - HYPERTENSION [None]
  - NERVOUSNESS [None]
